APPROVED DRUG PRODUCT: SIROLIMUS
Active Ingredient: SIROLIMUS
Strength: 0.5MG
Dosage Form/Route: TABLET;ORAL
Application: A208691 | Product #001 | TE Code: AB
Applicant: GLENMARK PHARMACEUTICALS LTD
Approved: Oct 16, 2020 | RLD: No | RS: No | Type: RX